FAERS Safety Report 26080775 (Version 1)
Quarter: 2025Q4

REPORT INFORMATION
  Report Type: Spontaneous
  Country: US (occurrence: US)
  Receive Date: 20251124
  Receipt Date: 20251124
  Transmission Date: 20260117
  Serious: No
  Sender: ABBVIE
  Company Number: US-ABBVIE-6555169

PATIENT
  Age: 64 Year
  Sex: Female

DRUGS (2)
  1. SKYRIZI [Suspect]
     Active Substance: RISANKIZUMAB-RZAA
     Indication: Psoriasis
     Dosage: STRENGTH: 150MG/ML WEEK 0
     Route: 058
     Dates: start: 20251005, end: 20251005
  2. SKYRIZI [Suspect]
     Active Substance: RISANKIZUMAB-RZAA
     Dosage: STRENGTH: 150MG/ML WEEK 4 AND EVERY 12 WEEKS THEREAFTER
     Route: 058
     Dates: start: 20251102

REACTIONS (7)
  - Erythema [Unknown]
  - Pruritus [Unknown]
  - Pain [Unknown]
  - Therapeutic product effect decreased [Unknown]
  - Swelling of eyelid [Unknown]
  - Eyelids pruritus [Unknown]
  - Erythema of eyelid [Unknown]

NARRATIVE: CASE EVENT DATE: 20250101
